FAERS Safety Report 4835010-3 (Version None)
Quarter: 2005Q4

REPORT INFORMATION
  Report Type: 
  Country: None (occurrence: None)
  Receive Date: 20051114
  Receipt Date: 20050719
  Transmission Date: 20060501
  Serious: Yes (Hospitalization, Other)
  Sender: FDA-Public Use
  Company Number: 2005BI012584

PATIENT
  Age: 47 Year
  Sex: Female
  Weight: 95.2554 kg

DRUGS (3)
  1. AVONEX [Suspect]
     Indication: MULTIPLE SCLEROSIS
     Dosage: 30 UG; QW; IM
     Route: 030
     Dates: start: 20031101
  2. ELAVIL [Concomitant]
  3. HORMONE PILL [Concomitant]

REACTIONS (23)
  - ANXIETY [None]
  - CHEST PAIN [None]
  - CONDITION AGGRAVATED [None]
  - DEPRESSION [None]
  - EATING DISORDER [None]
  - EXOSTOSIS [None]
  - FALL [None]
  - FEELING ABNORMAL [None]
  - HYPER IGE SYNDROME [None]
  - HYPERSENSITIVITY [None]
  - MASS [None]
  - MEMORY IMPAIRMENT [None]
  - MULTIPLE SCLEROSIS [None]
  - MYALGIA [None]
  - NECK PAIN [None]
  - NERVOUSNESS [None]
  - PAIN IN EXTREMITY [None]
  - POST PROCEDURAL COMPLICATION [None]
  - RESTLESS LEGS SYNDROME [None]
  - SHOULDER PAIN [None]
  - TENDON INJURY [None]
  - ULCER [None]
  - VISUAL ACUITY REDUCED [None]
